FAERS Safety Report 10495442 (Version 1)
Quarter: 2014Q3

REPORT INFORMATION
  Report Type: Spontaneous
  Country: US (occurrence: None)
  Receive Date: 20140815
  Receipt Date: 20140815
  Transmission Date: 20150326
  Serious: Yes (Other)
  Sender: FDA-Public Use
  Company Number: ADR-2014-00512

PATIENT
  Age: 48 Year
  Sex: Female

DRUGS (1)
  1. BACLOFEN INTRATHECAL [Suspect]
     Active Substance: BACLOFEN
     Indication: MUSCLE SPASTICITY

REACTIONS (6)
  - Implant site swelling [None]
  - Pruritus generalised [None]
  - Loss of consciousness [None]
  - Tremor [None]
  - Implant site extravasation [None]
  - Dizziness [None]

NARRATIVE: CASE EVENT DATE: 20140317
